FAERS Safety Report 9835397 (Version 2)
Quarter: 2014Q1

REPORT INFORMATION
  Report Type: Spontaneous
  Country: US (occurrence: US)
  Receive Date: 20140122
  Receipt Date: 20140122
  Transmission Date: 20141002
  Serious: No
  Sender: FDA-Public Use
  Company Number: US-BRISTOL-MYERS SQUIBB COMPANY-19548189

PATIENT
  Age: 81 Year
  Sex: Female
  Weight: 72.56 kg

DRUGS (6)
  1. ELIQUIS [Suspect]
     Indication: ATRIAL FIBRILLATION
     Route: 048
     Dates: start: 20130828
  2. METOPROLOL [Concomitant]
  3. VITAMIN C [Concomitant]
  4. FISH OIL [Concomitant]
  5. POTASSIUM [Concomitant]
  6. VITAMIN D3 [Concomitant]

REACTIONS (1)
  - Drug dose omission [Unknown]
